FAERS Safety Report 6457139-9 (Version None)
Quarter: 2009Q4

REPORT INFORMATION
  Report Type: 
  Country: None (occurrence: None)
  Receive Date: 20091125
  Receipt Date: 20091119
  Transmission Date: 20100525
  Serious: Yes (Death)
  Sender: FDA-Public Use
  Company Number: B0606737A

PATIENT
  Age: 47 Year
  Sex: Male

DRUGS (2)
  1. ALBENDAZOLE [Suspect]
     Route: 065
  2. DIETHYLCARBAMAZINE [Suspect]
     Route: 065

REACTIONS (1)
  - DEATH [None]
